FAERS Safety Report 5909134-3 (Version None)
Quarter: 2008Q3

REPORT INFORMATION
  Report Type: 
  Country: None (occurrence: None)
  Receive Date: 20080929
  Receipt Date: 20080922
  Transmission Date: 20090109
  Serious: Yes (Other)
  Sender: FDA-Public Use
  Company Number: CHPA2008US15982

PATIENT
  Age: 90 Year
  Sex: Female

DRUGS (6)
  1. FERROUS SULFATE TAB [Suspect]
     Indication: ANAEMIA
     Dosage: 160 MG, TID, ORAL
     Route: 048
     Dates: start: 20080501, end: 20080922
  2. NEXIUM [Concomitant]
  3. ZOCOR [Concomitant]
  4. THERAGRAN (VITAMINS NOS) [Concomitant]
  5. CALCIUM (CALCIUM) [Concomitant]
  6. ANTIHYPERTENSIVE DRUGS (NO INGREDIENTS/SUBSTANCES) [Concomitant]

REACTIONS (4)
  - DEHYDRATION [None]
  - DIARRHOEA [None]
  - NAUSEA [None]
  - VOMITING [None]
